FAERS Safety Report 7616811-5 (Version None)
Quarter: 2011Q3

REPORT INFORMATION
  Report Type: 
  Country: None (occurrence: None)
  Receive Date: 20110718
  Receipt Date: 20110706
  Transmission Date: 20111222
  Serious: No
  Sender: FDA-Public Use
  Company Number: US-BIOGENIDEC-2010BI039167

PATIENT
  Sex: Female

DRUGS (7)
  1. AMPYRA [Concomitant]
     Indication: FALL
     Route: 048
     Dates: start: 20100418, end: 20100719
  2. AMPYRA [Concomitant]
     Route: 048
     Dates: start: 20100723
  3. TYSABRI [Suspect]
     Indication: MULTIPLE SCLEROSIS
     Route: 042
     Dates: start: 20090325
  4. AMPYRA [Concomitant]
     Indication: GAIT DISTURBANCE
     Route: 048
     Dates: start: 20100418, end: 20100719
  5. AMPYRA [Concomitant]
     Route: 048
     Dates: start: 20100723
  6. AMPYRA [Concomitant]
     Route: 048
     Dates: start: 20100723
  7. AMPYRA [Concomitant]
     Indication: BALANCE DISORDER
     Route: 048
     Dates: start: 20100418, end: 20100719

REACTIONS (6)
  - MUSCULOSKELETAL DISORDER [None]
  - BALANCE DISORDER [None]
  - GAIT DISTURBANCE [None]
  - MULTIPLE SCLEROSIS [None]
  - FALL [None]
  - ASTHENIA [None]
